FAERS Safety Report 7366122-0 (Version None)
Quarter: 2011Q1

REPORT INFORMATION
  Report Type: 
  Country: None (occurrence: None)
  Receive Date: 20110225
  Receipt Date: 20110106
  Transmission Date: 20110831
  Serious: No
  Sender: FDA-Public Use
  Company Number: 321977

PATIENT
  Age: 66 Year
  Sex: Male

DRUGS (2)
  1. VICTOZA [Suspect]
     Indication: TYPE 2 DIABETES MELLITUS
     Dosage: 1.8 MG, QD, SUBCUTANEOUS
     Route: 058
  2. LIPITOR [Concomitant]

REACTIONS (5)
  - FEELING ABNORMAL [None]
  - NASOPHARYNGITIS [None]
  - NAUSEA [None]
  - DECREASED APPETITE [None]
  - ASTHENIA [None]
